FAERS Safety Report 11608424 (Version 1)
Quarter: 2015Q4

REPORT INFORMATION
  Report Type: Other
  Country: GB (occurrence: GB)
  Receive Date: 20151007
  Receipt Date: 20151007
  Transmission Date: 20160304
  Serious: Yes (Hospitalization)
  Sender: FDA-Public Use
  Company Number: GB-MYLANLABS-2015M1032748

PATIENT

DRUGS (6)
  1. ADCAL-D3 [Concomitant]
     Active Substance: CALCIUM CARBONATE\CHOLECALCIFEROL
     Dosage: 1 DF, BID (750MG/200UNIT CAPLETS)
  2. ADALAT CC [Concomitant]
     Active Substance: NIFEDIPINE
     Dosage: 1 DF, QD
  3. WARFARIN [Concomitant]
     Active Substance: WARFARIN
     Dosage: AS PER INTERNATIONAL NOMALISED RATIO.?4MG FRIDAY, 3MG FOR THE REST OF THE WEEK.
  4. TRAMADOL. [Suspect]
     Active Substance: TRAMADOL
     Indication: PAIN
     Dosage: 100 MG, QID
  5. OMEPRAZOLE. [Concomitant]
     Active Substance: OMEPRAZOLE
     Dosage: 20 MG, QD
  6. PARACETAMOL [Concomitant]
     Active Substance: ACETAMINOPHEN
     Dosage: TAKE 1 OR 2 UP TO 4 TIMES A DAY- MAXIMUM 8 IN 24 HOURS.

REACTIONS (3)
  - Faecaloma [Recovered/Resolved]
  - Abdominal pain [Recovered/Resolved]
  - Constipation [Recovered/Resolved]
